FAERS Safety Report 8474054-X (Version None)
Quarter: 2012Q2

REPORT INFORMATION
  Report Type: 
  Country: None (occurrence: None)
  Receive Date: 20120628
  Receipt Date: 20110629
  Transmission Date: 20120825
  Serious: Yes (Other)
  Sender: FDA-Public Use
  Company Number: US-MYLANLABS-2010S1023250

PATIENT
  Age: 48 Year
  Sex: Female
  Weight: 90.72 kg

DRUGS (14)
  1. CLOZAPINE [Suspect]
  2. ABILIFY [Concomitant]
  3. CLOZAPINE [Suspect]
     Route: 048
     Dates: start: 20110201, end: 20110201
  4. DIVALPROEX SODIUM [Concomitant]
  5. LEXAPRO [Concomitant]
  6. CLOZAPINE [Suspect]
     Route: 048
     Dates: start: 20090729, end: 20110201
  7. ASPIRIN [Concomitant]
  8. POLYETHYLENE GLYCOL [Concomitant]
  9. BENZTROPINE MESYLATE [Concomitant]
  10. TOPAMAX [Concomitant]
  11. RANITIDINE [Concomitant]
  12. METFORMIN HCL [Concomitant]
  13. BUSPIRONE HCL [Concomitant]
  14. M.V.I. [Concomitant]

REACTIONS (2)
  - WHITE BLOOD CELL COUNT DECREASED [None]
  - GRANULOCYTOPENIA [None]
